FAERS Safety Report 9725808 (Version 3)
Quarter: 2019Q4

REPORT INFORMATION
  Report Type: Spontaneous
  Country: US (occurrence: US)
  Receive Date: 20131203
  Receipt Date: 20191219
  Transmission Date: 20200122
  Serious: Yes (Hospitalization)
  Sender: FDA-Public Use
  Company Number: US-UCBSA-098119

PATIENT
  Age: 19 Year
  Sex: Male
  Weight: 49.8 kg

DRUGS (10)
  1. CIMZIA [Suspect]
     Active Substance: CERTOLIZUMAB PEGOL
     Indication: CROHN^S DISEASE
     Dosage: 102284. EXP DATE. ??/DEC/2015
     Dates: start: 20130711, end: 2013
  2. IMURAN [Concomitant]
     Active Substance: AZATHIOPRINE
     Dosage: 50 MG, ONCE DAILY (QD)
  3. MULTIVITAMIN [Concomitant]
     Active Substance: VITAMINS
     Dosage: UNK UNK, ONCE DAILY (QD)
  4. DIPHENHYDRAMINE. [Concomitant]
     Active Substance: DIPHENHYDRAMINE
     Dosage: 25 MG ONCE DAILY
  5. LORAZEPAM. [Concomitant]
     Active Substance: LORAZEPAM
     Indication: ANXIETY
     Dosage: 0.5 MG. 1 TAB. EVERY 6 HOURS.
  6. PREDNISONE. [Concomitant]
     Active Substance: PREDNISONE
     Dosage: 5 MG, ONCE DAILY (QD)
  7. IRON [Concomitant]
     Active Substance: IRON
     Dosage: BEFORE MEALS
  8. DURAGESIC [Concomitant]
     Active Substance: FENTANYL
     Dosage: 25 ?G, EV 3 DAYS
  9. AZATHIOPRINE. [Concomitant]
     Active Substance: AZATHIOPRINE
     Dosage: 75 MG, ONCE DAILY (QD)
  10. FOLIC ACID. [Concomitant]
     Active Substance: FOLIC ACID
     Dosage: 800 MG, ONCE DAILY (QD)

REACTIONS (3)
  - Pyrexia [Not Recovered/Not Resolved]
  - Crohn^s disease [Recovering/Resolving]
  - Infection [Unknown]

NARRATIVE: CASE EVENT DATE: 2013
